APPROVED DRUG PRODUCT: EPINEPHRINE
Active Ingredient: EPINEPHRINE
Strength: 1MG/ML (1MG/ML) **Federal Register determination that product was not discontinued or withdrawn for safety or effectiveness reasons**
Dosage Form/Route: SOLUTION;INTRAVENOUS
Application: N205029 | Product #003
Applicant: BPI LABS LLC
Approved: May 12, 2023 | RLD: Yes | RS: No | Type: DISCN